FAERS Safety Report 19987599 (Version 1)
Quarter: 2021Q4

REPORT INFORMATION
  Report Type: Spontaneous
  Country: US (occurrence: US)
  Receive Date: 20211023
  Receipt Date: 20211023
  Transmission Date: 20220303
  Serious: No
  Sender: FDA-Public Use
  Company Number: US-SA-SAC20211021000277

PATIENT
  Sex: Male

DRUGS (1)
  1. DUPIXENT [Suspect]
     Active Substance: DUPILUMAB
     Dosage: 300 MG,FREQUENCY: OTHER
     Route: 058
     Dates: start: 202110

REACTIONS (1)
  - Confusional state [Unknown]
